FAERS Safety Report 9716268 (Version 2)
Quarter: 2013Q4

REPORT INFORMATION
  Report Type: Report from Study
  Country: FR (occurrence: FR)
  Receive Date: 20131127
  Receipt Date: 20131127
  Transmission Date: 20140711
  Serious: Yes (Hospitalization)
  Sender: FDA-Public Use
  Company Number: FR-ROCHE-1151492

PATIENT
  Age: 66 Year
  Sex: Female
  Weight: 55 kg

DRUGS (9)
  1. PEG-INTERFERON ALFA 2A [Suspect]
     Indication: HEPATITIS C
     Route: 058
     Dates: start: 20120907, end: 20121019
  2. RIBAVIRIN [Suspect]
     Indication: HEPATITIS C
     Route: 048
     Dates: start: 20120907, end: 20121026
  3. TELAPREVIR [Suspect]
     Indication: HEPATITIS C
     Route: 048
     Dates: start: 20120907, end: 20121026
  4. DEXERYL (GLYCEROL/WHITE SOFT PARAFFIN/LIQUID PARAFFIN) [Concomitant]
     Indication: PROPHYLAXIS
     Route: 061
     Dates: start: 20120907, end: 20121026
  5. DIPROSONE [Concomitant]
     Indication: RASH
     Route: 061
     Dates: start: 20120917, end: 20121026
  6. ZYRTEC [Concomitant]
     Indication: RASH
     Route: 048
     Dates: start: 20120917, end: 20121026
  7. POLARAMINE [Concomitant]
     Indication: RASH
     Route: 048
     Dates: start: 20120917, end: 20121026
  8. MOTILYO [Concomitant]
     Indication: VOMITING
     Route: 048
     Dates: start: 20121003, end: 20121026
  9. PRIMPERAN (FRANCE) [Concomitant]
     Indication: VOMITING
     Route: 065
     Dates: start: 20121022, end: 20121026

REACTIONS (1)
  - Pancytopenia [Recovered/Resolved]
